FAERS Safety Report 23820656 (Version 1)
Quarter: 2024Q2

REPORT INFORMATION
  Report Type: Spontaneous
  Country: US (occurrence: None)
  Receive Date: 20240503
  Receipt Date: 20240503
  Transmission Date: 20240716
  Serious: Yes (Hospitalization)
  Sender: FDA-Public Use
  Company Number: None

PATIENT
  Age: 24 Year
  Sex: Male

DRUGS (1)
  1. RIVAROXABAN [Suspect]
     Active Substance: RIVAROXABAN
     Dosage: FREQUENCY : DAILY;?
     Route: 048
     Dates: start: 20220906, end: 20221013

REACTIONS (4)
  - Liver function test increased [None]
  - Ceruloplasmin increased [None]
  - Blood thyroid stimulating hormone increased [None]
  - Portal tract inflammation [None]

NARRATIVE: CASE EVENT DATE: 20221013
